FAERS Safety Report 6700015-4 (Version None)
Quarter: 2010Q2

REPORT INFORMATION
  Report Type: 
  Country: None (occurrence: None)
  Receive Date: 20100427
  Receipt Date: 20100427
  Transmission Date: 20101027
  Serious: Yes (Hospitalization)
  Sender: FDA-Public Use
  Company Number: None

PATIENT
  Sex: Male
  Weight: 74 kg

DRUGS (4)
  1. BEVACIZUMAB [Suspect]
     Dosage: 750 MG
     Dates: end: 20100407
  2. LEUCOVORIN CALCIUM [Suspect]
     Dosage: 1500 MG
     Dates: end: 20100407
  3. ELOXATIN [Suspect]
     Dosage: 0 MG
     Dates: end: 20090908
  4. FLUOROURACIL [Suspect]
     Dosage: 6200 MG
     Dates: end: 20100407

REACTIONS (4)
  - ABDOMINAL PAIN [None]
  - CONSTIPATION [None]
  - LARGE INTESTINAL OBSTRUCTION [None]
  - VOLVULUS [None]
